FAERS Safety Report 7340279-X (Version None)
Quarter: 2011Q1

REPORT INFORMATION
  Report Type: 
  Country: None (occurrence: None)
  Receive Date: 20110309
  Receipt Date: 20110228
  Transmission Date: 20110831
  Serious: Yes (Hospitalization)
  Sender: FDA-Public Use
  Company Number: AR-BIOGENIDEC-2011BI005222

PATIENT
  Age: 29 Year
  Sex: Female

DRUGS (4)
  1. TYSABRI [Suspect]
     Indication: MULTIPLE SCLEROSIS
     Route: 042
     Dates: start: 20071114, end: 20080101
  2. CITALOPRAM HYDROBROMIDE [Concomitant]
     Route: 048
     Dates: start: 20080716
  3. TYSABRI [Suspect]
     Route: 042
     Dates: end: 20101225
  4. BACLOFEN [Concomitant]
     Route: 048
     Dates: start: 20080716

REACTIONS (2)
  - MULTIPLE SCLEROSIS RELAPSE [None]
  - JC VIRUS TEST [None]
